FAERS Safety Report 9415602 (Version 1)
Quarter: 2013Q3

REPORT INFORMATION
  Report Type: Spontaneous
  Country: JP (occurrence: JP)
  Receive Date: 20130723
  Receipt Date: 20130723
  Transmission Date: 20140515
  Serious: Yes (Life-Threatening, Hospitalization, Other)
  Sender: FDA-Public Use
  Company Number: JP-PFIZER INC-2013154312

PATIENT
  Age: 81 Year
  Sex: Male
  Weight: 41.5 kg

DRUGS (17)
  1. ANCARON [Suspect]
     Indication: VENTRICULAR TACHYCARDIA
     Dosage: 100 MG, DAILY
     Route: 048
     Dates: start: 2000
  2. ANCARON [Suspect]
     Indication: VENTRICULAR TACHYCARDIA
     Dosage: 200 MG, DAILY
     Route: 048
     Dates: start: 2008, end: 20110331
  3. ANCARON [Suspect]
     Dosage: 100 MG, DAILY
     Route: 048
     Dates: start: 20110401, end: 20110404
  4. ANCARON [Suspect]
     Dosage: 400 MG, DAILY
     Route: 048
     Dates: start: 20110405, end: 20110405
  5. ANCARON [Suspect]
     Dosage: 200 MG, TWICE A DAY
     Route: 048
     Dates: start: 20110406, end: 20110502
  6. TENORMIN [Suspect]
     Indication: VENTRICULAR TACHYCARDIA
     Dosage: 25 MG, DAILY
     Route: 048
     Dates: start: 2008
  7. TENORMIN [Suspect]
     Dosage: 50 MG, DAILY
     Route: 048
     Dates: end: 2011
  8. BAYASPIRIN [Concomitant]
     Dosage: 100 MG, DAILY
     Route: 048
     Dates: start: 20110329, end: 20110402
  9. LUPRAC [Concomitant]
     Dosage: 8 MG, DAILY
     Route: 048
     Dates: start: 20110329, end: 20110502
  10. ALDACTONE [Concomitant]
     Dosage: 25 MG, DAILY
     Route: 048
     Dates: start: 20110329, end: 20110421
  11. MEXILETINE [Concomitant]
     Dosage: UNK
     Dates: start: 2000
  12. NIFEKALANT [Concomitant]
     Dosage: UNK
     Dates: start: 2007
  13. LIDOCAINE [Concomitant]
     Dosage: UNK
     Dates: start: 2007
  14. MAINTATE [Concomitant]
     Dosage: 2.5 MG, UNK
     Dates: start: 20110329, end: 20110502
  15. GASTERD [Concomitant]
     Dosage: 20 MG, UNK
     Dates: start: 20110329, end: 20110502
  16. KETAS [Concomitant]
     Dosage: 10 MG, UNK
     Dates: start: 20110329, end: 20110421
  17. METHYLCOBAL [Concomitant]
     Dosage: 500 UG, UNK
     Dates: start: 20110329, end: 20110502

REACTIONS (4)
  - Drug ineffective [Recovering/Resolving]
  - Ventricular tachycardia [Recovering/Resolving]
  - Malaise [Recovering/Resolving]
  - Chest discomfort [Recovering/Resolving]
